FAERS Safety Report 5683573-0 (Version None)
Quarter: 2008Q2

REPORT INFORMATION
  Report Type: 
  Country: None (occurrence: None)
  Receive Date: 20080318
  Receipt Date: 20070305
  Transmission Date: 20081010
  Serious: Yes (Other)
  Sender: FDA-Public Use
  Company Number: A03200701837

PATIENT
  Sex: Male

DRUGS (4)
  1. ELIGARD [Suspect]
     Indication: PROSTATE CANCER STAGE I
     Dosage: 7.5 MG 1/MONTH - SUBCUTANEOUS
     Route: 058
     Dates: start: 20021201
  2. ELIGARD [Suspect]
     Indication: PROSTATE CANCER STAGE I
     Dosage: 7.5 MG Q3M - SUBCUTANEOUS
     Route: 058
  3. ZOMETA [Suspect]
     Dosage: INTRAVENOUS NOS
     Route: 042
  4. PAMIDRONATE DISODIUM [Suspect]
     Dosage: INTRAVENOUS NOS
     Route: 042

REACTIONS (28)
  - ALOPECIA [None]
  - ARTHRALGIA [None]
  - BACK PAIN [None]
  - BONE PAIN [None]
  - CONSTIPATION [None]
  - DERMATITIS [None]
  - FATIGUE [None]
  - GOUT [None]
  - GYNAECOMASTIA [None]
  - HEADACHE [None]
  - HOT FLUSH [None]
  - HYPERGLYCAEMIA [None]
  - HYPERNATRAEMIA [None]
  - INSOMNIA [None]
  - MICTURITION DISORDER [None]
  - MUSCLE ATROPHY [None]
  - MUSCLE SPASMS [None]
  - MYALGIA [None]
  - OEDEMA [None]
  - PAIN [None]
  - PAIN IN EXTREMITY [None]
  - POLLAKIURIA [None]
  - SYNCOPE [None]
  - TESTICULAR PAIN [None]
  - TREMOR [None]
  - UNDERDOSE [None]
  - URGE INCONTINENCE [None]
  - WEIGHT INCREASED [None]
